FAERS Safety Report 7808936-6 (Version None)
Quarter: 2011Q4

REPORT INFORMATION
  Report Type: 
  Country: None (occurrence: None)
  Receive Date: 20111012
  Receipt Date: 20110523
  Transmission Date: 20120403
  Serious: Yes (Hospitalization)
  Sender: FDA-Public Use
  Company Number: GB-UCBSA-021563

PATIENT
  Age: 51 Year
  Sex: Female

DRUGS (1)
  1. ACETAMINOPHEN W/ CODEINE [Suspect]
     Indication: MUSCULOSKELETAL PAIN
     Dosage: UNKNOWN DOSE

REACTIONS (1)
  - CEREBRAL VASOCONSTRICTION [None]
